FAERS Safety Report 7289830-9 (Version None)
Quarter: 2011Q1

REPORT INFORMATION
  Report Type: 
  Country: None (occurrence: None)
  Receive Date: 20110214
  Receipt Date: 20110203
  Transmission Date: 20110831
  Serious: No
  Sender: FDA-Public Use
  Company Number: US-BIOGENIDEC-2011BI004453

PATIENT
  Age: 47 Year
  Sex: Male

DRUGS (1)
  1. AVONEX [Suspect]
     Indication: MULTIPLE SCLEROSIS
     Route: 030
     Dates: start: 20100409

REACTIONS (7)
  - MOOD SWINGS [None]
  - WEIGHT DECREASED [None]
  - POLLAKIURIA [None]
  - NECK PAIN [None]
  - PAIN [None]
  - MUSCLE SPASMS [None]
  - DEPRESSION [None]
